FAERS Safety Report 24695793 (Version 1)
Quarter: 2024Q4

REPORT INFORMATION
  Report Type: Report from Study
  Country: CR (occurrence: CR)
  Receive Date: 20241204
  Receipt Date: 20241204
  Transmission Date: 20250115
  Serious: Yes (Death, Hospitalization, Other)
  Sender: AMGEN
  Company Number: CR-SERVIER-S24015658

PATIENT
  Age: 83 Year
  Sex: Female

DRUGS (3)
  1. IVABRADINE [Suspect]
     Active Substance: IVABRADINE
     Indication: Cardiac failure
     Dosage: 1 DF, QD
     Route: 048
     Dates: end: 20241101
  2. TRIMETAZIDINE [Suspect]
     Active Substance: TRIMETAZIDINE
     Indication: Angina pectoris
     Dosage: 35 MG, QD
     Route: 048
     Dates: end: 20241101
  3. SACUBITRIL\VALSARTAN [Concomitant]
     Active Substance: SACUBITRIL\VALSARTAN
     Indication: Product used for unknown indication
     Dosage: UNK
     Route: 065

REACTIONS (5)
  - Cardiac disorder [Fatal]
  - Product use issue [Fatal]
  - Hospitalisation [Fatal]
  - Malnutrition [Fatal]
  - Nosocomial infection [Fatal]
